FAERS Safety Report 14228468 (Version 7)
Quarter: 2018Q4

REPORT INFORMATION
  Report Type: Report from Study
  Country: None (occurrence: CH)
  Receive Date: 20171127
  Receipt Date: 20181120
  Transmission Date: 20190204
  Serious: Yes (Hospitalization, Other)
  Sender: FDA-Public Use
  Company Number: CH-ABBVIE-17K-151-2174950-00

PATIENT
  Age: 79 Year
  Sex: Male

DRUGS (3)
  1. DUODOPA [Suspect]
     Active Substance: CARBIDOPA\LEVODOPA
     Indication: PARKINSON^S DISEASE
     Dosage: MORNING DOSE 9.0ML?CONTINUOUS RATE 4.5ML/H?EXTRA DOSE 2.8ML?16H THERAPY
     Route: 050
     Dates: start: 20140708
  2. DUODOPA [Suspect]
     Active Substance: CARBIDOPA\LEVODOPA
     Dosage: MORNING DOSE 9.0ML?CONTINUOUS RATE 4.1ML/H?EXTRA DOSE 2.5ML?16H THERAPY
     Route: 050
     Dates: start: 20141202, end: 20170626
  3. DUODOPA [Suspect]
     Active Substance: CARBIDOPA\LEVODOPA
     Dosage: MORNING DOSE 9.0ML?CONTINUOUS RATE 4.5ML/H?EXTRA DOSE 2.8ML?16H THERAPY
     Route: 050
     Dates: start: 20170626

REACTIONS (9)
  - Fall [Unknown]
  - Overconfidence [Unknown]
  - Dehydration [Unknown]
  - Suicidal ideation [Unknown]
  - Femoral neck fracture [Recovered/Resolved with Sequelae]
  - Fluid intake reduced [Unknown]
  - Weight decreased [Unknown]
  - Hypophagia [Unknown]
  - Restlessness [Recovering/Resolving]

NARRATIVE: CASE EVENT DATE: 201711
